FAERS Safety Report 18594106 (Version 4)
Quarter: 2021Q2

REPORT INFORMATION
  Report Type: Report from Study
  Country: US (occurrence: US)
  Receive Date: 20201209
  Receipt Date: 20210615
  Transmission Date: 20210717
  Serious: Yes (Hospitalization, Other)
  Sender: FDA-Public Use
  Company Number: NVSC2020US325347

PATIENT
  Sex: Male

DRUGS (1)
  1. ENTRESTO [Suspect]
     Active Substance: SACUBITRIL\VALSARTAN
     Indication: PRODUCT USED FOR UNKNOWN INDICATION
     Dosage: UNK
     Route: 065

REACTIONS (9)
  - Muscle atrophy [Recovering/Resolving]
  - Weight fluctuation [Unknown]
  - COVID-19 [Recovering/Resolving]
  - Taste disorder [Recovering/Resolving]
  - Weight decreased [Unknown]
  - Hiccups [Unknown]
  - Diverticulitis [Unknown]
  - Sciatica [Recovering/Resolving]
  - Sleep disorder [Unknown]
